FAERS Safety Report 6823678-1 (Version None)
Quarter: 2010Q3

REPORT INFORMATION
  Report Type: 
  Country: None (occurrence: None)
  Receive Date: 20100708
  Receipt Date: 20060822
  Transmission Date: 20110219
  Serious: No
  Sender: FDA-Public Use
  Company Number: US-PFIZER INC-2006103602

PATIENT
  Sex: Female
  Weight: 58.97 kg

DRUGS (2)
  1. CHANTIX [Suspect]
     Indication: SMOKING CESSATION THERAPY
     Dates: start: 20060818
  2. ATENOLOL [Concomitant]

REACTIONS (3)
  - DYSPNOEA [None]
  - NASAL CONGESTION [None]
  - WHEEZING [None]
